FAERS Safety Report 11408828 (Version 1)
Quarter: 2015Q3

REPORT INFORMATION
  Report Type: Spontaneous
  Country: US (occurrence: US)
  Receive Date: 20150823
  Receipt Date: 20150823
  Transmission Date: 20151125
  Serious: No
  Sender: FDA-Public Use
  Company Number: US-GLAXOSMITHKLINE-US2015GSK104235

PATIENT
  Sex: Female

DRUGS (1)
  1. TYKERB [Suspect]
     Active Substance: LAPATINIB DITOSYLATE
     Indication: NEOPLASM MALIGNANT
     Dosage: UNK, U
     Dates: start: 20150707

REACTIONS (6)
  - Diarrhoea [Unknown]
  - Nausea [Unknown]
  - Hyperhidrosis [Unknown]
  - Lip pain [Unknown]
  - Feeding disorder [Unknown]
  - Chills [Unknown]
